FAERS Safety Report 9291657 (Version 1)
Quarter: 2013Q2

REPORT INFORMATION
  Report Type: Spontaneous
  Country: GB (occurrence: GB)
  Receive Date: 20130515
  Receipt Date: 20130515
  Transmission Date: 20140414
  Serious: Yes (Life-Threatening, Hospitalization, Other)
  Sender: FDA-Public Use
  Company Number: GB-OTSUKA-EU-2013-10120

PATIENT
  Age: 67 Year
  Sex: Female

DRUGS (5)
  1. SAMSCA [Suspect]
     Dosage: 15 MG MILLIGRAM(S), QD
     Route: 048
     Dates: start: 20130418, end: 20130419
  2. DALTEPARIN [Concomitant]
     Dosage: UNK
     Route: 058
     Dates: start: 20130321
  3. ENALAPRIL [Concomitant]
     Dosage: 10 MG MILLIGRAM(S), QD
     Route: 048
  4. RANITIDINE [Concomitant]
     Dosage: 150 MG MILLIGRAM(S), QD
     Route: 048
  5. SIMVASTATIN [Concomitant]
     Dosage: 40 MG MILLIGRAM(S), QD
     Route: 048

REACTIONS (8)
  - Anxiety [Unknown]
  - Confusional state [Recovered/Resolved]
  - Delusion [Unknown]
  - Hallucination [Recovered/Resolved]
  - Dysarthria [Recovered/Resolved]
  - Thinking abnormal [Unknown]
  - Blood sodium increased [Unknown]
  - Rapid correction of hyponatraemia [Unknown]
